FAERS Safety Report 9728275 (Version 1)
Quarter: 2013Q4

REPORT INFORMATION
  Report Type: Spontaneous
  Country: US (occurrence: None)
  Receive Date: 20131203
  Receipt Date: 20131203
  Transmission Date: 20140711
  Serious: Yes (Hospitalization)
  Sender: FDA-Public Use
  Company Number: None

PATIENT
  Age: 64 Year
  Sex: Male

DRUGS (1)
  1. PERPHENAZINE [Suspect]
     Indication: SLEEP DISORDER
     Route: 048
     Dates: start: 20131028, end: 20131118

REACTIONS (1)
  - Serotonin syndrome [None]
